FAERS Safety Report 14174449 (Version 1)
Quarter: 2017Q4

REPORT INFORMATION
  Report Type: Report from Study
  Country: US (occurrence: US)
  Receive Date: 20171109
  Receipt Date: 20171109
  Transmission Date: 20180321
  Serious: Yes (Other)
  Sender: FDA-Public Use
  Company Number: US-SA-2016SA004568

PATIENT
  Age: 37 Year
  Sex: Female

DRUGS (2)
  1. LEMTRADA [Suspect]
     Active Substance: ALEMTUZUMAB
     Indication: MULTIPLE SCLEROSIS
     Route: 041
     Dates: start: 20150330, end: 20150404
  2. LEMTRADA [Suspect]
     Active Substance: ALEMTUZUMAB
     Indication: MULTIPLE SCLEROSIS
     Route: 041
     Dates: end: 20160422

REACTIONS (7)
  - Fatigue [Recovered/Resolved]
  - Neoplasm malignant [Unknown]
  - Nausea [Recovered/Resolved]
  - Lethargy [Recovered/Resolved]
  - Pain [Recovered/Resolved]
  - Weight decreased [Unknown]
  - Gastroenteritis viral [Recovered/Resolved]

NARRATIVE: CASE EVENT DATE: 2015
